FAERS Safety Report 6167597-5 (Version None)
Quarter: 2009Q2

REPORT INFORMATION
  Report Type: 
  Country: None (occurrence: None)
  Receive Date: 20090424
  Receipt Date: 20090415
  Transmission Date: 20091009
  Serious: Yes (Other)
  Sender: FDA-Public Use
  Company Number: US-CELGENEUS-163-21880-08041243

PATIENT
  Sex: Male

DRUGS (2)
  1. REVLIMID [Suspect]
     Indication: MULTIPLE MYELOMA
     Route: 048
     Dates: start: 20080401
  2. REVLIMID [Suspect]
     Route: 048
     Dates: start: 20080324, end: 20080413

REACTIONS (2)
  - EXFOLIATIVE RASH [None]
  - SWELLING [None]
